FAERS Safety Report 10199899 (Version 1)
Quarter: 2014Q2

REPORT INFORMATION
  Report Type: Spontaneous
  Country: US (occurrence: US)
  Receive Date: 20140527
  Receipt Date: 20140527
  Transmission Date: 20141212
  Serious: No
  Sender: FDA-Public Use
  Company Number: US-NOVEN-14US009054

PATIENT
  Age: 8 Year
  Sex: Male
  Weight: 18.14 kg

DRUGS (2)
  1. DAYTRANA [Suspect]
     Indication: ATTENTION DEFICIT/HYPERACTIVITY DISORDER
     Dosage: 30 MG, QD
     Route: 062
  2. NORDITROPIN [Concomitant]
     Indication: HORMONE THERAPY
     Dosage: UNK
     Route: 030
     Dates: start: 201401

REACTIONS (5)
  - Drug ineffective [Not Recovered/Not Resolved]
  - Drug effect delayed [Not Recovered/Not Resolved]
  - Drug administered at inappropriate site [Recovered/Resolved]
  - Off label use [Recovered/Resolved]
  - Product quality issue [Not Recovered/Not Resolved]
